FAERS Safety Report 16608216 (Version 1)
Quarter: 2019Q3

REPORT INFORMATION
  Report Type: Other
  Country: CA (occurrence: CA)
  Receive Date: 20190722
  Receipt Date: 20190722
  Transmission Date: 20191004
  Serious: Yes (Other)
  Sender: FDA-Public Use
  Company Number: CA-PFIZER INC-2019307910

PATIENT
  Age: 18 Month
  Sex: Male

DRUGS (1)
  1. TOPOTECAN HYDROCHLORIDE. [Suspect]
     Active Substance: TOPOTECAN HYDROCHLORIDE
     Indication: CONGENITAL RETINOBLASTOMA
     Dosage: 2 MG, UNK
     Route: 065

REACTIONS (9)
  - Conjunctival oedema [Recovered/Resolved]
  - Blister [Recovered/Resolved]
  - Hypersensitivity [Recovered/Resolved]
  - Product use in unapproved indication [Recovered/Resolved]
  - Skin disorder [Recovered/Resolved]
  - Off label use [Recovered/Resolved]
  - Eyelid oedema [Recovered/Resolved]
  - Conjunctival haemorrhage [Recovered/Resolved]
  - Papule [Recovered/Resolved]
